FAERS Safety Report 23234406 (Version 1)
Quarter: 2023Q4

REPORT INFORMATION
  Report Type: Report from Study
  Country: TH (occurrence: TH)
  Receive Date: 20231128
  Receipt Date: 20231128
  Transmission Date: 20240110
  Serious: Yes (Other)
  Sender: FDA-Public Use
  Company Number: TH-TAKEDA-2023TUS031576

PATIENT
  Age: 32 Year
  Sex: Male

DRUGS (1)
  1. VEDOLIZUMAB [Suspect]
     Active Substance: VEDOLIZUMAB
     Indication: Crohn^s disease
     Dosage: 300 MILLIGRAM
     Route: 042
     Dates: start: 20221220

REACTIONS (5)
  - Ileal ulcer [Unknown]
  - Gastrointestinal erosion [Unknown]
  - Rash pruritic [Unknown]
  - Gastritis [Unknown]
  - Enteritis [Unknown]

NARRATIVE: CASE EVENT DATE: 20230201
